FAERS Safety Report 5532755-7 (Version None)
Quarter: 2007Q4

REPORT INFORMATION
  Report Type: 
  Country: None (occurrence: None)
  Receive Date: 20071204
  Receipt Date: 20071129
  Transmission Date: 20080405
  Serious: Yes (Life-Threatening, Other)
  Sender: FDA-Public Use
  Company Number: PHEH2007US10567

PATIENT
  Age: 57 Year
  Sex: Female

DRUGS (4)
  1. FEMARA [Suspect]
     Indication: BREAST CANCER
     Dosage: 2.5 MG, QD
     Dates: start: 20070715, end: 20070718
  2. COUMADIN [Concomitant]
     Indication: DEEP VEIN THROMBOSIS
     Dosage: 5MG  FOR 6 DAYS, 7.5MG FOR 1 DAY
     Dates: start: 20040101
  3. RESTORIL [Concomitant]
     Indication: SLEEP DISORDER
     Dosage: 30 MG, QHS
  4. DULCOLAX [Concomitant]
     Indication: ABNORMAL FAECES

REACTIONS (10)
  - CONFUSIONAL STATE [None]
  - DIZZINESS [None]
  - EJECTION FRACTION DECREASED [None]
  - HEADACHE [None]
  - HYPOAESTHESIA [None]
  - MENTAL STATUS CHANGES [None]
  - SPEECH DISORDER [None]
  - TRANSIENT ISCHAEMIC ATTACK [None]
  - TRICUSPID VALVE INCOMPETENCE [None]
  - VENTRICULAR INTERNAL DIAMETER ABNORMAL [None]
